FAERS Safety Report 10263346 (Version 3)
Quarter: 2020Q2

REPORT INFORMATION
  Report Type: Spontaneous
  Country: AU (occurrence: AU)
  Receive Date: 20140626
  Receipt Date: 20200521
  Transmission Date: 20200713
  Serious: Yes (Hospitalization)
  Sender: FDA-Public Use
  Company Number: AU-INCYTE CORPORATION-2014IN001770

PATIENT

DRUGS (1)
  1. JAKAVI [Suspect]
     Active Substance: RUXOLITINIB
     Indication: MYELOFIBROSIS
     Dosage: TABLET
     Route: 048
     Dates: start: 201211

REACTIONS (1)
  - Pneumocystis jirovecii pneumonia [Recovered/Resolved]
